FAERS Safety Report 8408706-4 (Version None)
Quarter: 2012Q2

REPORT INFORMATION
  Report Type: 
  Country: None (occurrence: None)
  Receive Date: 20120604
  Receipt Date: 20120530
  Transmission Date: 20120825
  Serious: Yes (Hospitalization)
  Sender: FDA-Public Use
  Company Number: US-B.I. PHARMACEUTICALS,INC./RIDGEFIELD-2012-BP-12669BP

PATIENT
  Sex: Female

DRUGS (7)
  1. MICARDIS HCT [Concomitant]
     Indication: HYPERTENSION
  2. RYTHMOL [Concomitant]
     Indication: ATRIAL FIBRILLATION
  3. SINGULAIR [Concomitant]
     Indication: ASTHMA
  4. PRADAXA [Suspect]
     Indication: ATRIAL FIBRILLATION
     Dosage: 300 MG
     Route: 048
     Dates: start: 20110601, end: 20110701
  5. PRISTIQ [Concomitant]
     Indication: DEPRESSION
  6. LEVOXYL [Concomitant]
     Indication: HYPOTHYROIDISM
  7. PRAVASTATIN [Concomitant]
     Indication: BLOOD CHOLESTEROL INCREASED

REACTIONS (1)
  - MELAENA [None]
